FAERS Safety Report 17923441 (Version 1)
Quarter: 2020Q2

REPORT INFORMATION
  Report Type: Spontaneous
  Country: US (occurrence: US)
  Receive Date: 20200619
  Receipt Date: 20200619
  Transmission Date: 20200714
  Serious: No
  Sender: FDA-Public Use
  Company Number: None

PATIENT
  Age: 5 Year
  Sex: Female
  Weight: 23.7 kg

DRUGS (5)
  1. CARBOPLATIN. [Suspect]
     Active Substance: CARBOPLATIN
  2. CISPLATIN. [Concomitant]
     Active Substance: CISPLATIN
     Dates: end: 20170113
  3. CYCLOPHOSPHAMIDE. [Concomitant]
     Active Substance: CYCLOPHOSPHAMIDE
     Dates: end: 20170115
  4. ETOPOSIDE (VP-16) [Concomitant]
     Active Substance: ETOPOSIDE
     Dates: end: 20170115
  5. VINCRISTINE SULFATE. [Suspect]
     Active Substance: VINCRISTINE SULFATE
     Dates: end: 20170105

REACTIONS (3)
  - Acute myeloid leukaemia [None]
  - Disease recurrence [None]
  - Pancytopenia [None]

NARRATIVE: CASE EVENT DATE: 20200430
